FAERS Safety Report 10528416 (Version 1)
Quarter: 2014Q4

REPORT INFORMATION
  Report Type: Spontaneous
  Country: US (occurrence: None)
  Receive Date: 20141017
  Receipt Date: 20141017
  Transmission Date: 20150528
  Serious: No
  Sender: FDA-Public Use
  Company Number: None

PATIENT
  Age: 78 Year
  Sex: Female
  Weight: 51.26 kg

DRUGS (2)
  1. OXYCODONE ACETAMINOPHEN [Suspect]
     Active Substance: ACETAMINOPHEN\OXYCODONE HYDROCHLORIDE
     Indication: TOOTHACHE
     Dosage: AS NEEDED MTAKEN BY MOUTH
  2. OXYCODONE ACETAMINOPHEN [Suspect]
     Active Substance: ACETAMINOPHEN\OXYCODONE HYDROCHLORIDE
     Indication: PROCEDURAL PAIN
     Dosage: AS NEEDED MTAKEN BY MOUTH

REACTIONS (4)
  - Balance disorder [None]
  - Nausea [None]
  - Abnormal dreams [None]
  - Dizziness [None]

NARRATIVE: CASE EVENT DATE: 20141013
